FAERS Safety Report 9671997 (Version 1)
Quarter: 2013Q4

REPORT INFORMATION
  Report Type: Report from Study
  Country: FR (occurrence: FR)
  Receive Date: 20131106
  Receipt Date: 20131106
  Transmission Date: 20140711
  Serious: Yes (Hospitalization)
  Sender: FDA-Public Use
  Company Number: FR-GLAXOSMITHKLINE-A0998062A

PATIENT
  Age: 61 Year
  Sex: Male
  Weight: 65 kg

DRUGS (2)
  1. TRAMETINIB [Suspect]
     Indication: NEOPLASM
     Dosage: 1.5MG PER DAY
     Route: 048
     Dates: start: 20120813
  2. PEMETREXED [Suspect]
     Indication: NEOPLASM
     Dosage: 500MGM2 CYCLIC
     Route: 042
     Dates: start: 20120813

REACTIONS (1)
  - Pyrexia [Recovered/Resolved]
